FAERS Safety Report 25079409 (Version 1)
Quarter: 2025Q1

REPORT INFORMATION
  Report Type: Spontaneous
  Country: JP (occurrence: JP)
  Receive Date: 20250314
  Receipt Date: 20250314
  Transmission Date: 20250408
  Serious: Yes (Death)
  Sender: MALLINCKRODT
  Company Number: JP-MALLINCKRODT-MNK202501381

PATIENT
  Age: 7 Decade
  Sex: Female

DRUGS (1)
  1. UVADEX [Suspect]
     Active Substance: METHOXSALEN
     Indication: Chronic graft versus host disease in intestine
     Route: 050

REACTIONS (3)
  - Graft versus host disease in gastrointestinal tract [Fatal]
  - Condition aggravated [Fatal]
  - Drug ineffective [Unknown]
